FAERS Safety Report 25090565 (Version 1)
Quarter: 2025Q1

REPORT INFORMATION
  Report Type: Spontaneous
  Country: US (occurrence: None)
  Receive Date: 20250318
  Receipt Date: 20250318
  Transmission Date: 20250409
  Serious: Yes (Hospitalization)
  Sender: FDA-CTU
  Company Number: None

PATIENT
  Age: 62 Year
  Sex: Female
  Weight: 115.3 kg

DRUGS (4)
  1. FLUOROURACIL [Suspect]
     Active Substance: FLUOROURACIL
  2. XELODA [Suspect]
     Active Substance: CAPECITABINE
  3. LEUCOVORIN CALCIUM [Suspect]
     Active Substance: LEUCOVORIN CALCIUM
  4. ELOXATIN [Suspect]
     Active Substance: OXALIPLATIN

REACTIONS (4)
  - Pulmonary embolism [None]
  - Presyncope [None]
  - Therapy partial responder [None]
  - Proctitis [None]

NARRATIVE: CASE EVENT DATE: 20250301
